FAERS Safety Report 9146526 (Version 1)
Quarter: 2013Q1

REPORT INFORMATION
  Report Type: Spontaneous
  Country: US (occurrence: US)
  Receive Date: 20130307
  Receipt Date: 20130307
  Transmission Date: 20140127
  Serious: No
  Sender: FDA-Public Use
  Company Number: US-GLAXOSMITHKLINE-A0993501A

PATIENT
  Age: 25 Year
  Sex: Female

DRUGS (1)
  1. REQUIP [Suspect]
     Indication: SLEEP DISORDER
     Dosage: .25MG PER DAY
     Route: 048
     Dates: start: 201209

REACTIONS (2)
  - Visual impairment [Not Recovered/Not Resolved]
  - Breast tenderness [Unknown]
